FAERS Safety Report 25237994 (Version 3)
Quarter: 2025Q2

REPORT INFORMATION
  Report Type: Report from Study
  Country: US (occurrence: US)
  Receive Date: 20250425
  Receipt Date: 20250513
  Transmission Date: 20250717
  Serious: No
  Sender: ABBVIE
  Company Number: US-ABBVIE-6248211

PATIENT
  Age: 83 Year
  Sex: Female
  Weight: 91 kg

DRUGS (2)
  1. URSODIOL [Suspect]
     Active Substance: URSODIOL
     Indication: Hepatic cirrhosis
     Route: 065
  2. CREON [Suspect]
     Active Substance: PANCRELIPASE AMYLASE\PANCRELIPASE LIPASE\PANCRELIPASE PROTEASE
     Indication: Pancreatic failure
     Route: 048
     Dates: start: 20250411

REACTIONS (6)
  - Feeding disorder [Unknown]
  - Abdominal distension [Unknown]
  - Weight decreased [Unknown]
  - Blood bilirubin increased [Unknown]
  - Memory impairment [Unknown]
  - Pancreatitis [Unknown]

NARRATIVE: CASE EVENT DATE: 20241201
